FAERS Safety Report 12340444 (Version 1)
Quarter: 2016Q2

REPORT INFORMATION
  Report Type: Spontaneous
  Country: None (occurrence: None)
  Receive Date: 20160505
  Receipt Date: 20160505
  Transmission Date: 20160815
  Serious: No
  Sender: FDA-Public Use
  Company Number: None

PATIENT
  Sex: Female

DRUGS (1)
  1. IMODIUM [Suspect]
     Active Substance: LOPERAMIDE HYDROCHLORIDE

REACTIONS (8)
  - Vision blurred [None]
  - No therapeutic response [None]
  - Fatigue [None]
  - Diarrhoea [None]
  - Abdominal discomfort [None]
  - Thirst [None]
  - Blood glucose increased [None]
  - Vomiting [None]
